FAERS Safety Report 8565052-6 (Version None)
Quarter: 2012Q3

REPORT INFORMATION
  Report Type: 
  Country: None (occurrence: None)
  Receive Date: 20120803
  Receipt Date: 20070226
  Transmission Date: 20120928
  Serious: Yes (Other)
  Sender: FDA-Public Use
  Company Number: CO-PFIZER INC-2012185005

PATIENT
  Age: 72 Year
  Sex: Male

DRUGS (9)
  1. QUINAPRIL AND HYDROCHLOROTHIAZIDE [Suspect]
     Indication: HYPERTENSION
     Dosage: UNK
  2. LIPITOR [Suspect]
     Indication: DYSLIPIDAEMIA
     Dosage: UNK
  3. ACETYLSALICYLIC ACID [Concomitant]
     Dosage: UNK
  4. OLMESARTAN MEDOXOMIL [Suspect]
     Indication: HYPERTENSION
     Dosage: 20 MG, 1X/DAY
  5. AMLODIPINE [Concomitant]
     Dosage: UNK
  6. METOPROLOL TARTRATE [Concomitant]
     Dosage: 1 DF, 1X/DAY
  7. AMLODIPINE [Concomitant]
     Dosage: 1 DF, 1X/DAY
  8. ACETYLSALICYLIC ACID [Concomitant]
     Dosage: 1 DF, 1X/DAY
  9. HYDROCHLOROTHIAZIDE [Concomitant]
     Dosage: 1 DF, 1X/DAY

REACTIONS (5)
  - HAEMATURIA [None]
  - LEUKOCYTURIA [None]
  - HYPERTENSIVE EMERGENCY [None]
  - RENAL FAILURE CHRONIC [None]
  - DYSPNOEA [None]
